FAERS Safety Report 4336117-X (Version None)
Quarter: 2004Q2

REPORT INFORMATION
  Report Type: 
  Country: None (occurrence: None)
  Receive Date: 20040409
  Receipt Date: 20040401
  Transmission Date: 20050107
  Serious: Yes (Hospitalization)
  Sender: FDA-Public Use
  Company Number: JP-MERCK-0404USA00396

PATIENT
  Age: 61 Year
  Sex: Female

DRUGS (6)
  1. CEFAZOLIN [Concomitant]
     Route: 065
  2. HIBISCRUB [Suspect]
     Route: 065
  3. PEPCID [Suspect]
     Route: 048
  4. DIPRIVAN [Concomitant]
     Route: 065
  5. THIAMYLAL SODIUM [Concomitant]
     Route: 065
  6. MUSCULAX [Concomitant]
     Route: 065

REACTIONS (1)
  - ANAPHYLACTIC SHOCK [None]
